FAERS Safety Report 7094868-0 (Version None)
Quarter: 2010Q4

REPORT INFORMATION
  Report Type: 
  Country: None (occurrence: None)
  Receive Date: 20101111
  Receipt Date: 20101101
  Transmission Date: 20110411
  Serious: Yes (Hospitalization)
  Sender: FDA-Public Use
  Company Number: US-BIOGENIDEC-2010BI039030

PATIENT
  Age: 34 Year
  Sex: Female
  Weight: 140 kg

DRUGS (3)
  1. AVONEX [Suspect]
     Indication: MULTIPLE SCLEROSIS
     Route: 030
     Dates: start: 20040901, end: 20050401
  2. AVONEX [Suspect]
     Route: 030
     Dates: start: 20060201, end: 20081001
  3. AVONEX [Suspect]
     Route: 030
     Dates: start: 20090701

REACTIONS (9)
  - ABASIA [None]
  - BURNING SENSATION [None]
  - DYSARTHRIA [None]
  - DYSGEUSIA [None]
  - HEADACHE [None]
  - INFLUENZA LIKE ILLNESS [None]
  - LISTLESS [None]
  - SOPOR [None]
  - VOMITING [None]
